FAERS Safety Report 4626408-7 (Version None)
Quarter: 2005Q1

REPORT INFORMATION
  Report Type: 
  Country: None (occurrence: None)
  Receive Date: 20050330
  Receipt Date: 20050316
  Transmission Date: 20050727
  Serious: Yes (Hospitalization, Other)
  Sender: FDA-Public Use
  Company Number: MEDI-0003026

PATIENT
  Age: 70 Year
  Sex: Female
  Weight: 58.514 kg

DRUGS (7)
  1. ETHYOL [Suspect]
     Indication: RADIOTHERAPY
     Dosage: 500 MG (1 IN 1 D), SUBCUTANEOUS
     Route: 058
     Dates: start: 20050124, end: 20050224
  2. RADIATION THERAPY [Concomitant]
  3. CISPLATIN [Concomitant]
  4. ALLEGRA [Concomitant]
  5. PREMARIN [Concomitant]
  6. ASA (ACETYLASICYLIC ACID0 [Concomitant]
  7. ATACAND [Concomitant]

REACTIONS (18)
  - CATHETER SITE DISCHARGE [None]
  - CATHETER SITE INFECTION [None]
  - CATHETER SITE PAIN [None]
  - CATHETER SITE RELATED REACTION [None]
  - DEHYDRATION [None]
  - DEVICE FAILURE [None]
  - DYSPNOEA EXACERBATED [None]
  - ENTEROCOCCAL INFECTION [None]
  - FEEDING TUBE COMPLICATION [None]
  - NAUSEA [None]
  - ODYNOPHAGIA [None]
  - PALMAR ERYTHEMA [None]
  - PIGMENTATION DISORDER [None]
  - PRURITUS [None]
  - PURULENT DISCHARGE [None]
  - RASH MORBILLIFORM [None]
  - TACHYPNOEA [None]
  - VOMITING [None]
